FAERS Safety Report 13733738 (Version 3)
Quarter: 2017Q3

REPORT INFORMATION
  Report Type: Spontaneous
  Country: DE (occurrence: DE)
  Receive Date: 20170707
  Receipt Date: 20170728
  Transmission Date: 20171127
  Serious: Yes (Hospitalization, Other)
  Sender: FDA-Public Use
  Company Number: DE-BRISTOL-MYERS SQUIBB COMPANY-BMS-2017-060324

PATIENT
  Age: 83 Year
  Sex: Female
  Weight: 68 kg

DRUGS (1)
  1. ELIQUIS [Suspect]
     Active Substance: APIXABAN
     Indication: CEREBROVASCULAR ACCIDENT PROPHYLAXIS
     Dosage: 2.5 MG, UNK
     Route: 065
     Dates: start: 20160721

REACTIONS (5)
  - Transient ischaemic attack [Unknown]
  - Peripheral artery occlusion [Unknown]
  - Embolic stroke [Unknown]
  - Thrombectomy [Unknown]
  - Product quality issue [Unknown]

NARRATIVE: CASE EVENT DATE: 20170507
